FAERS Safety Report 8063010-1 (Version None)
Quarter: 2012Q1

REPORT INFORMATION
  Report Type: 
  Country: None (occurrence: None)
  Receive Date: 20120123
  Receipt Date: 20120118
  Transmission Date: 20120608
  Serious: Yes (Other)
  Sender: FDA-Public Use
  Company Number: JP-PFIZER INC-2011300239

PATIENT
  Age: 81 Year
  Sex: Male

DRUGS (5)
  1. LYRICA [Suspect]
     Dosage: 25 MG + 50 MG
     Route: 048
     Dates: start: 20111121, end: 20111204
  2. LYRICA [Suspect]
     Dosage: 25 MG, 2X/DAY
     Route: 048
     Dates: start: 20111005, end: 20111120
  3. GOSHAJINKIGAN [Concomitant]
     Dosage: 2.5 G, 3X/DAY
     Route: 048
     Dates: start: 20110407
  4. LYRICA [Suspect]
     Dosage: 25 MG, 1X/DAY
     Route: 048
     Dates: start: 20110924, end: 20111004
  5. OPALMON [Concomitant]
     Dosage: THRICE DAILY
     Route: 048
     Dates: start: 20110407

REACTIONS (3)
  - DEAFNESS [None]
  - TINNITUS [None]
  - DRUG EFFECT DECREASED [None]
